FAERS Safety Report 13298364 (Version 1)
Quarter: 2017Q1

REPORT INFORMATION
  Report Type: Spontaneous
  Country: US (occurrence: US)
  Receive Date: 20170306
  Receipt Date: 20170306
  Transmission Date: 20170428
  Serious: Yes (Life-Threatening, Disabling, Other)
  Sender: FDA-Public Use
  Company Number: None

PATIENT
  Age: 63 Year
  Sex: Female
  Weight: 81.65 kg

DRUGS (18)
  1. AMITRIPTYLINE [Concomitant]
     Active Substance: AMITRIPTYLINE
  2. CELEBREX [Concomitant]
     Active Substance: CELECOXIB
  3. HYDROCODONE BITARTRATE AND ACETAMINOPHEN [Concomitant]
     Active Substance: ACETAMINOPHEN\HYDROCODONE BITARTRATE
  4. VALIUM [Concomitant]
     Active Substance: DIAZEPAM
  5. IMITREX [Concomitant]
     Active Substance: SUMATRIPTAN SUCCINATE
  6. ROBAXIN [Concomitant]
     Active Substance: METHOCARBAMOL
  7. VITAMIN E [Concomitant]
     Active Substance: .ALPHA.-TOCOPHEROL
  8. PRE-NATAL VITAMIN [Concomitant]
  9. HARVONI [Suspect]
     Active Substance: LEDIPASVIR\SOFOSBUVIR
     Indication: HEPATITIS C
     Route: 048
     Dates: start: 20141120, end: 20150214
  10. CHANTIX [Concomitant]
     Active Substance: VARENICLINE TARTRATE
  11. GLUCOSE [Concomitant]
     Active Substance: DEXTROSE
  12. MAGNESIUM [Concomitant]
     Active Substance: MAGNESIUM
  13. SKELATON [Concomitant]
  14. PRILOSEC [Concomitant]
     Active Substance: OMEPRAZOLE MAGNESIUM
  15. ZINC. [Concomitant]
     Active Substance: ZINC
  16. VITAMIN B [Concomitant]
     Active Substance: VITAMIN B
  17. VITAMIN C [Concomitant]
     Active Substance: ASCORBIC ACID
  18. MELATONIN [Concomitant]
     Active Substance: MELATONIN

REACTIONS (21)
  - Hypersomnia [None]
  - Gait disturbance [None]
  - Cerebral disorder [None]
  - Mental impairment [None]
  - Fatigue [None]
  - Dysstasia [None]
  - Weight increased [None]
  - Tangentiality [None]
  - Bedridden [None]
  - Amnesia [None]
  - Cognitive disorder [None]
  - Victim of crime [None]
  - Pityriasis lichenoides et varioliformis acuta [None]
  - Aphasia [None]
  - Skin disorder [None]
  - Decubitus ulcer [None]
  - Sciatica [None]
  - Muscle atrophy [None]
  - Impaired driving ability [None]
  - Faeces discoloured [None]
  - Quality of life decreased [None]

NARRATIVE: CASE EVENT DATE: 19951111
